FAERS Safety Report 11669233 (Version 1)
Quarter: 2015Q4

REPORT INFORMATION
  Report Type: Spontaneous
  Country: FR (occurrence: FR)
  Receive Date: 20151027
  Receipt Date: 20151027
  Transmission Date: 20160304
  Serious: Yes (Life-Threatening, Hospitalization, Other)
  Sender: FDA-Public Use
  Company Number: FR-GILEAD-2015-0178285

PATIENT
  Age: 11 Day
  Sex: Female

DRUGS (4)
  1. TRUVADA [Suspect]
     Active Substance: EMTRICITABINE\TENOFOVIR DISOPROXIL FUMARATE
     Indication: HIV INFECTION
     Dosage: UNK
     Route: 064
     Dates: start: 20150307, end: 20150925
  2. PREZISTA [Suspect]
     Active Substance: DARUNAVIR ETHANOLATE
     Indication: HIV INFECTION
     Dosage: UNK
     Route: 064
     Dates: start: 20150307, end: 20150925
  3. RETROVIR [Concomitant]
     Active Substance: ZIDOVUDINE
     Dosage: UNK
     Dates: end: 20151006
  4. NORVIR [Suspect]
     Active Substance: RITONAVIR
     Indication: HIV INFECTION
     Dosage: UNK
     Route: 064
     Dates: start: 20150307, end: 20150925

REACTIONS (4)
  - Hyponatraemia [Recovered/Resolved]
  - Pneumatosis [Recovered/Resolved]
  - Rectal haemorrhage [Recovered/Resolved]
  - Necrotising enterocolitis neonatal [Recovered/Resolved]

NARRATIVE: CASE EVENT DATE: 20151005
